FAERS Safety Report 13306211 (Version 2)
Quarter: 2017Q2

REPORT INFORMATION
  Report Type: Spontaneous
  Country: CA (occurrence: CA)
  Receive Date: 20170308
  Receipt Date: 20170424
  Transmission Date: 20170830
  Serious: Yes (Other)
  Sender: FDA-Public Use
  Company Number: CA-LPDUSPRD-20170218

PATIENT
  Age: 79 Year
  Sex: Male

DRUGS (4)
  1. PERINDOPRIL [Concomitant]
     Active Substance: PERINDOPRIL
     Dosage: 2MG DAILY
     Route: 065
  2. GLICLAZIDE [Concomitant]
     Active Substance: GLICLAZIDE
     Dosage: 60 MG DAILY
     Route: 048
  3. VENOFER [Suspect]
     Active Substance: IRON SUCROSE
     Dosage: 500 ML /250 NS OVER 5 HOURS
     Route: 042
     Dates: start: 20170130, end: 20170130
  4. FERAMAX [Concomitant]
     Active Substance: IRON\POLYSACCHARIDES
     Dosage: UNKNOWN
     Route: 065

REACTIONS (11)
  - Pruritus [Unknown]
  - Asthenia [Unknown]
  - Dizziness [Unknown]
  - Hypotension [Unknown]
  - Posture abnormal [Unknown]
  - Peripheral swelling [Unknown]
  - Vomiting [Unknown]
  - Fall [Unknown]
  - Nausea [Unknown]
  - Dyspnoea [Unknown]
  - Loss of consciousness [Unknown]

NARRATIVE: CASE EVENT DATE: 20170130
